FAERS Safety Report 5532289-X (Version None)
Quarter: 2007Q4

REPORT INFORMATION
  Report Type: 
  Country: None (occurrence: None)
  Receive Date: 20071203
  Receipt Date: 20071120
  Transmission Date: 20080405
  Serious: Yes (Hospitalization)
  Sender: FDA-Public Use
  Company Number: US-ELI_LILLY_AND_COMPANY-US200710005007

PATIENT
  Sex: Female

DRUGS (4)
  1. FORTEO [Suspect]
     Indication: OSTEOPOROSIS
     Dates: start: 20070921
  2. COZAAR [Concomitant]
     Indication: BLOOD PRESSURE
  3. REQUIP [Concomitant]
     Indication: PARKINSON'S DISEASE
  4. SINEMET [Concomitant]
     Indication: PARKINSON'S DISEASE

REACTIONS (8)
  - ARTHRITIS [None]
  - BACK DISORDER [None]
  - BACK PAIN [None]
  - HYPOAESTHESIA [None]
  - MOBILITY DECREASED [None]
  - OEDEMA PERIPHERAL [None]
  - PAIN IN EXTREMITY [None]
  - SPINAL COLUMN STENOSIS [None]
